FAERS Safety Report 15991855 (Version 1)
Quarter: 2019Q1

REPORT INFORMATION
  Report Type: Spontaneous
  Country: GB (occurrence: GB)
  Receive Date: 20190221
  Receipt Date: 20190221
  Transmission Date: 20190418
  Serious: Yes (Other)
  Sender: FDA-Public Use
  Company Number: GB-PFIZER INC-2019072211

PATIENT
  Age: 71 Year
  Sex: Female

DRUGS (18)
  1. VALSARTAN TEVA [Suspect]
     Active Substance: VALSARTAN
     Dosage: UNK
  2. MULTIVITAMINS [ASCORBIC ACID;ERGOCALCIFEROL;FOLIC ACID;NICOTINAMIDE;PA [Concomitant]
     Indication: FOOD ALLERGY
     Dosage: UNK
  3. DIOVAN [Suspect]
     Active Substance: VALSARTAN
     Dosage: 80 MG, 1X/DAY (QD)
     Route: 048
     Dates: end: 20161126
  4. DIOVAN [Suspect]
     Active Substance: VALSARTAN
     Dosage: UNK
     Route: 048
     Dates: end: 2017
  5. DIOVAN [Suspect]
     Active Substance: VALSARTAN
     Dosage: 80 MG, 1X/DAY
     Route: 048
     Dates: end: 2008
  6. LANSOPRAZOLE. [Concomitant]
     Active Substance: LANSOPRAZOLE
     Dosage: UNK
  7. OMEPRAZOLE. [Concomitant]
     Active Substance: OMEPRAZOLE
     Indication: ABDOMINAL DISCOMFORT
     Dosage: UNK, 1X/DAY (IN MORNING)
  8. APROVEL [Suspect]
     Active Substance: IRBESARTAN
     Dosage: UNK
  9. SANDOSTATIN [Suspect]
     Active Substance: OCTREOTIDE ACETATE
     Dosage: UNK
     Dates: start: 201611
  10. AMLODIPINE BESILATE [Suspect]
     Active Substance: AMLODIPINE BESYLATE
     Dosage: 5 MG, UNK
  11. DIOVAN [Suspect]
     Active Substance: VALSARTAN
     Indication: HYPERTENSION
     Dosage: 40 MG, 1X/DAY
     Route: 048
     Dates: start: 2000
  12. RAMIPRIL. [Suspect]
     Active Substance: RAMIPRIL
     Dosage: 5 MG, UNK
     Dates: start: 20170106
  13. DIOVAN [Suspect]
     Active Substance: VALSARTAN
     Dosage: 80 MG, 1X/DAY
     Route: 048
     Dates: start: 200804, end: 201102
  14. VALSARTAN JUBILANT [Suspect]
     Active Substance: VALSARTAN
     Dosage: UNK
     Dates: start: 20140609
  15. PHYSIOTENS [Suspect]
     Active Substance: MOXONIDINE
     Dosage: 300 MG, UNK
  16. GAVISCON ADVANCE [POTASSIUM BICARBONATE;SODIUM ALGINATE] [Concomitant]
     Indication: REFLUX GASTRITIS
     Dosage: UNK, 2X/DAY (AFTERNOON/EVENING)
  17. VALSARTAN. [Suspect]
     Active Substance: VALSARTAN
     Dosage: 50 MG, UNK
     Dates: start: 20140615
  18. ZANIDIP [Suspect]
     Active Substance: LERCANIDIPINE HYDROCHLORIDE
     Dosage: UNK

REACTIONS (20)
  - Headache [Unknown]
  - Diarrhoea [Unknown]
  - Sinus disorder [Unknown]
  - Musculoskeletal chest pain [Unknown]
  - Pruritus [Unknown]
  - Neuralgia [Unknown]
  - Dyspepsia [Unknown]
  - Nervousness [Unknown]
  - Chest pain [Unknown]
  - Pain [Unknown]
  - Erythema [Unknown]
  - Arthralgia [Unknown]
  - Palpitations [Unknown]
  - Heart sounds abnormal [Unknown]
  - Abdominal pain [Unknown]
  - Helicobacter infection [Unknown]
  - Haemorrhoids [Unknown]
  - Insomnia [Unknown]
  - Nausea [Unknown]
  - Inflammation [Unknown]

NARRATIVE: CASE EVENT DATE: 2000
